FAERS Safety Report 7960374-1 (Version None)
Quarter: 2011Q4

REPORT INFORMATION
  Report Type: 
  Country: None (occurrence: None)
  Receive Date: 20111130
  Receipt Date: 20111114
  Transmission Date: 20120403
  Serious: Yes (Other)
  Sender: FDA-Public Use
  Company Number: 11-733

PATIENT
  Age: 76 Year
  Sex: Female
  Weight: 78 kg

DRUGS (10)
  1. ALEVE [Suspect]
     Dosage: 1 DF, QD, ORAL
     Route: 048
     Dates: start: 20111001
  2. RITALIN (ANTIHYPERTENSIVES) [Concomitant]
  3. THYROID TAB [Concomitant]
  4. CALCIUM [Concomitant]
  5. URINARY INCONTINENCE MEDICATION (UNKNOWN) [Concomitant]
  6. UBIDECARENONE [Concomitant]
  7. BAYER ASPIRIN ADULT LOW STRENGTH (ACETYLSALICYLIC ACID) [Concomitant]
  8. B COMPLEX (VITAMIN B-COMPLEX STANDARD) [Concomitant]
  9. METHYLPHENIDATE HCL [Concomitant]
  10. LASIX [Concomitant]

REACTIONS (1)
  - PETECHIAE [None]
